FAERS Safety Report 6105336-4 (Version None)
Quarter: 2009Q1

REPORT INFORMATION
  Report Type: 
  Country: None (occurrence: None)
  Receive Date: 20090306
  Receipt Date: 20090302
  Transmission Date: 20090719
  Serious: Yes (Hospitalization)
  Sender: FDA-Public Use
  Company Number: GB-BAYER-200910622BNE

PATIENT
  Age: 77 Year
  Sex: Male

DRUGS (5)
  1. ASPIRIN [Suspect]
     Indication: DRUG USE FOR UNKNOWN INDICATION
     Route: 048
  2. CLOPIDOGREL [Suspect]
     Indication: DRUG USE FOR UNKNOWN INDICATION
     Dates: start: 20081108
  3. ATENOLOL [Concomitant]
     Indication: ANGINA PECTORIS
  4. BENDROFLUMETHIAZIDE [Concomitant]
     Indication: HYPERTENSION
     Route: 048
  5. RAMIPRIL [Concomitant]
     Indication: ANGINA PECTORIS
     Route: 048

REACTIONS (4)
  - ABDOMINAL PAIN [None]
  - DUODENAL ULCER PERFORATION [None]
  - DYSPNOEA [None]
  - PERFORATED DUODENAL ULCER REPAIR [None]
